FAERS Safety Report 17885599 (Version 3)
Quarter: 2021Q2

REPORT INFORMATION
  Report Type: Spontaneous
  Country: US (occurrence: US)
  Receive Date: 20200611
  Receipt Date: 20210622
  Transmission Date: 20210717
  Serious: Yes (Other)
  Sender: FDA-Public Use
  Company Number: US-GILEAD-2020-0470587

PATIENT
  Age: 52 Year
  Sex: Female

DRUGS (17)
  1. TIVICAY [Concomitant]
     Active Substance: DOLUTEGRAVIR SODIUM
  2. IBUPROFEN. [Concomitant]
     Active Substance: IBUPROFEN
  3. ESOMEPRAZOLE. [Concomitant]
     Active Substance: ESOMEPRAZOLE MAGNESIUM
  4. LITHIUM CARBONATE. [Concomitant]
     Active Substance: LITHIUM CARBONATE
  5. ACETAMINOPHEN. [Concomitant]
     Active Substance: ACETAMINOPHEN
  6. STRIBILD [Suspect]
     Active Substance: COBICISTAT\ELVITEGRAVIR\EMTRICITABINE\TENOFOVIR DISOPROXIL FUMARATE
     Indication: HIV INFECTION
     Dosage: UNK
     Route: 048
     Dates: start: 201501, end: 2017
  7. TRIUMEQ [Concomitant]
     Active Substance: ABACAVIR SULFATE\DOLUTEGRAVIR SODIUM\LAMIVUDINE
  8. RANITIDINE. [Concomitant]
     Active Substance: RANITIDINE
  9. LEVONOX [Concomitant]
     Active Substance: ENOXAPARIN
  10. STRIBILD [Suspect]
     Active Substance: COBICISTAT\ELVITEGRAVIR\EMTRICITABINE\TENOFOVIR DISOPROXIL FUMARATE
     Dosage: UNK
     Route: 048
     Dates: start: 20140905, end: 20170825
  11. VITAMINS NOS [Concomitant]
     Active Substance: VITAMINS
  12. ATRIPLA [Suspect]
     Active Substance: EFAVIRENZ\EMTRICITABINE\TENOFOVIR DISOPROXIL FUMARATE
     Indication: HIV INFECTION
     Dosage: UNK
     Route: 048
     Dates: start: 200909, end: 20140905
  13. LASIX [Concomitant]
     Active Substance: FUROSEMIDE
  14. TYLENOL [Concomitant]
     Active Substance: ACETAMINOPHEN
  15. LOVENOX HP [Concomitant]
     Active Substance: ENOXAPARIN SODIUM
  16. VITAMIN D [COLECALCIFEROL] [Concomitant]
     Active Substance: CHOLECALCIFEROL
  17. DEPAKOTE [Concomitant]
     Active Substance: DIVALPROEX SODIUM

REACTIONS (8)
  - Emotional distress [Not Recovered/Not Resolved]
  - Anxiety [Not Recovered/Not Resolved]
  - Renal failure [Unknown]
  - Bone density decreased [Not Recovered/Not Resolved]
  - Fanconi syndrome acquired [Not Recovered/Not Resolved]
  - Tooth loss [Not Recovered/Not Resolved]
  - Hand fracture [Unknown]
  - Pain [Not Recovered/Not Resolved]

NARRATIVE: CASE EVENT DATE: 20131013
